FAERS Safety Report 19499782 (Version 3)
Quarter: 2021Q3

REPORT INFORMATION
  Report Type: Spontaneous
  Country: IN (occurrence: IN)
  Receive Date: 20210706
  Receipt Date: 20210802
  Transmission Date: 20211014
  Serious: Yes (Death)
  Sender: FDA-Public Use
  Company Number: IN-PFIZER INC-2021056931

PATIENT
  Age: 54 Year
  Sex: Female

DRUGS (4)
  1. LETROZOLE. [Concomitant]
     Active Substance: LETROZOLE
     Dosage: 5 MG(REPORTED AS 5MIG), DAILY
  2. FULVESTRANT. [Concomitant]
     Active Substance: FULVESTRANT
     Dosage: UNK
  3. PALBACE [Suspect]
     Active Substance: PALBOCICLIB
     Indication: BREAST CANCER METASTATIC
     Dosage: 125 MG, 1X/DAY
     Route: 048
     Dates: start: 20191205
  4. CA [CALCIUM CARBONATE;COLECALCIFEROL;MAGNESIUM] [Concomitant]
     Dosage: 15 MG(REPORTED AS MIG), DAILY

REACTIONS (4)
  - Dry skin [Unknown]
  - Neoplasm progression [Fatal]
  - Procedural pain [Unknown]
  - COVID-19 [Fatal]
